FAERS Safety Report 4610923-6 (Version None)
Quarter: 2005Q1

REPORT INFORMATION
  Report Type: 
  Country: None (occurrence: None)
  Receive Date: 20050317
  Receipt Date: 20030311
  Transmission Date: 20050727
  Serious: Yes (Death, Hospitalization)
  Sender: FDA-Public Use
  Company Number: GB-SOLVAY-00203000755

PATIENT
  Age: 31213 Day
  Sex: Female
  Weight: 67 kg

DRUGS (9)
  1. AMLODIPINE [Concomitant]
     Indication: ILL-DEFINED DISORDER
     Dosage: DAILY DOSE: UNK.
     Route: 048
     Dates: end: 20030301
  2. BLINDED THERAPY (PERINDOPRIL VS. PLACEBO) [Suspect]
     Indication: CARDIAC FAILURE CONGESTIVE
     Dosage: DAILY DOSE: 2 MG.
     Route: 048
     Dates: start: 20000801
  3. BLINDED THERAPY (PERINDOPRIL VS. PLACEBO) [Suspect]
     Dosage: DAILY DOSE: 2 MG.
     Route: 048
  4. BLINDED THERAPY (PERINDOPRIL VS. PLACEBO) [Suspect]
     Dosage: DAILY DOSE: 2 MG.
     Route: 048
     Dates: end: 20020626
  5. GLICLAZIDE [Concomitant]
     Indication: ILL-DEFINED DISORDER
     Dosage: DAILY DOSE:  UNKNOWN
     Route: 048
     Dates: end: 20040223
  6. ISOSORBIDE MONONITRATE [Concomitant]
     Indication: ILL-DEFINED DISORDER
     Dosage: DAILY DOSE:  UNKNOWN
     Route: 065
     Dates: end: 20040223
  7. NICORANDIL [Concomitant]
     Indication: ILL-DEFINED DISORDER
     Dosage: DAILY DOSE:  UNKNOWN
     Route: 065
  8. ALLOPURINOL [Concomitant]
     Indication: ILL-DEFINED DISORDER
     Dosage: DAILY DOSE:  UNKNOWN
     Route: 065
  9. METHYLCELLULOSE [Concomitant]
     Indication: ILL-DEFINED DISORDER
     Dosage: DAILY DOSE:  UNKNOWN
     Route: 065
     Dates: end: 20040223

REACTIONS (7)
  - CHEST PAIN [None]
  - DIABETES MELLITUS [None]
  - FAECAL INCONTINENCE [None]
  - MYOCARDIAL INFARCTION [None]
  - PNEUMONIA [None]
  - RENAL IMPAIRMENT [None]
  - URINARY INCONTINENCE [None]
